FAERS Safety Report 5055966-6 (Version None)
Quarter: 2006Q3

REPORT INFORMATION
  Report Type: 
  Country: None (occurrence: None)
  Receive Date: 20060720
  Receipt Date: 20060713
  Transmission Date: 20061208
  Serious: Yes (Hospitalization)
  Sender: FDA-Public Use
  Company Number: US-AVENTIS-200615850US

PATIENT
  Sex: Female

DRUGS (1)
  1. DDAVP [Suspect]
     Indication: NOCTURIA
     Route: 048
     Dates: start: 20060623

REACTIONS (3)
  - CONVULSION [None]
  - FALL [None]
  - UPPER LIMB FRACTURE [None]
